FAERS Safety Report 7601373-9 (Version None)
Quarter: 2011Q3

REPORT INFORMATION
  Report Type: 
  Country: None (occurrence: None)
  Receive Date: 20110711
  Receipt Date: 20110630
  Transmission Date: 20111222
  Serious: Yes (Other)
  Sender: FDA-Public Use
  Company Number: DE-ASTRAZENECA-2011SE39912

PATIENT
  Age: 38 Year
  Sex: Male

DRUGS (1)
  1. PROPOFOL [Suspect]
     Dosage: UP TO 400 MG DAILY

REACTIONS (3)
  - WITHDRAWAL SYNDROME [None]
  - DRUG ABUSE [None]
  - LOSS OF CONSCIOUSNESS [None]
